FAERS Safety Report 18445121 (Version 1)
Quarter: 2020Q4

REPORT INFORMATION
  Report Type: Spontaneous
  Country: BE (occurrence: BE)
  Receive Date: 20201030
  Receipt Date: 20201030
  Transmission Date: 20210114
  Serious: Yes (Death, Life-Threatening, Hospitalization, Other)
  Sender: FDA-Public Use
  Company Number: BE-STRIDES ARCOLAB LIMITED-2020SP012949

PATIENT
  Age: 43 Year
  Sex: Female

DRUGS (5)
  1. MYCOPHENOLATE MOFETIL. [Suspect]
     Active Substance: MYCOPHENOLATE MOFETIL
     Indication: RENAL TRANSPLANT
     Dosage: UNK
     Route: 065
  2. PREDNISOLONE. [Suspect]
     Active Substance: PREDNISOLONE
     Indication: SINUSITIS
     Route: 045
  3. TACROLIMUS. [Suspect]
     Active Substance: TACROLIMUS
     Indication: RENAL TRANSPLANT
     Dosage: UNK
     Route: 065
  4. METHYLPREDNISOLONE. [Suspect]
     Active Substance: METHYLPREDNISOLONE
     Dosage: 125 MILLIGRAM
     Route: 042
  5. METHYLPREDNISOLONE. [Suspect]
     Active Substance: METHYLPREDNISOLONE
     Indication: RENAL TRANSPLANT
     Dosage: 4MG DAILY
     Route: 065

REACTIONS (22)
  - Encephalitis [Fatal]
  - Optic neuritis [Not Recovered/Not Resolved]
  - Orbital apex syndrome [Not Recovered/Not Resolved]
  - Mucormycosis [Fatal]
  - Cytotoxic oedema [Not Recovered/Not Resolved]
  - Strabismus [Unknown]
  - Condition aggravated [Not Recovered/Not Resolved]
  - Acute sinusitis [Not Recovered/Not Resolved]
  - Sinusitis [Not Recovered/Not Resolved]
  - Sinusitis fungal [Not Recovered/Not Resolved]
  - Hyphaema [Unknown]
  - Infective aneurysm [Fatal]
  - Headache [Unknown]
  - Coma [Not Recovered/Not Resolved]
  - Exophthalmos [Unknown]
  - Conjunctival oedema [Unknown]
  - Mydriasis [Unknown]
  - Central nervous system infection [Fatal]
  - Subarachnoid haemorrhage [Fatal]
  - Blindness [Not Recovered/Not Resolved]
  - Ophthalmoplegia [Not Recovered/Not Resolved]
  - Eyelid ptosis [Unknown]
